FAERS Safety Report 20900276 (Version 1)
Quarter: 2022Q2

REPORT INFORMATION
  Report Type: Spontaneous
  Country: US (occurrence: None)
  Receive Date: 20220531
  Receipt Date: 20220531
  Transmission Date: 20220721
  Serious: Yes (Disabling)
  Sender: FDA-Public Use
  Company Number: None

PATIENT
  Sex: Female
  Weight: 63 kg

DRUGS (4)
  1. PROLIXIN DECANOATE [Suspect]
     Active Substance: FLUPHENAZINE DECANOATE
     Indication: Mental disorder
  2. PROLIXIN [Concomitant]
     Active Substance: FLUPHENAZINE HYDROCHLORIDE
  3. deconoate [Concomitant]
  4. CALCIUM [Concomitant]
     Active Substance: CALCIUM

REACTIONS (5)
  - Hypertonic bladder [None]
  - Weight increased [None]
  - Hypertension [None]
  - Depression [None]
  - Adverse drug reaction [None]
